FAERS Safety Report 4483483-0 (Version None)
Quarter: 2004Q4

REPORT INFORMATION
  Report Type: 
  Country: None (occurrence: None)
  Receive Date: 20041020
  Receipt Date: 20041011
  Transmission Date: 20050328
  Serious: Yes (Other)
  Sender: FDA-Public Use
  Company Number: S04-USA-06766-01

PATIENT
  Age: 38 Year
  Sex: Female

DRUGS (4)
  1. LEXAPRO [Suspect]
     Indication: ANXIETY
     Dosage: 10 MG QD PO
     Route: 048
     Dates: start: 20040801
  2. LEXAPRO [Suspect]
     Indication: DEPRESSION
     Dosage: 10 MG QD PO
     Route: 048
     Dates: start: 20040801
  3. ESTRATEST [Concomitant]
  4. MENEST [Concomitant]

REACTIONS (8)
  - BAND NEUTROPHIL COUNT INCREASED [None]
  - BURNING SENSATION [None]
  - CONFUSIONAL STATE [None]
  - FEELING HOT [None]
  - GRAND MAL CONVULSION [None]
  - NEUTROPHIL COUNT INCREASED [None]
  - POSTICTAL STATE [None]
  - WHITE BLOOD CELL COUNT INCREASED [None]
